FAERS Safety Report 6721672-2 (Version None)
Quarter: 2010Q2

REPORT INFORMATION
  Report Type: 
  Country: None (occurrence: None)
  Receive Date: 20100512
  Receipt Date: 20100510
  Transmission Date: 20101027
  Serious: Yes (Life-Threatening, Other)
  Sender: FDA-Public Use
  Company Number: JP-JNJFOC-20100207525

PATIENT
  Sex: Female
  Weight: 44 kg

DRUGS (32)
  1. DUROTEP MT [Suspect]
     Indication: CANCER PAIN
     Route: 062
  2. DUROTEP MT [Suspect]
     Route: 062
  3. DUROTEP MT [Suspect]
     Route: 062
  4. DUROTEP MT [Suspect]
     Route: 062
  5. DUROTEP MT [Suspect]
     Route: 062
  6. OXYCONTIN [Suspect]
     Indication: CANCER PAIN
     Route: 048
  7. OXYCONTIN [Suspect]
     Route: 048
  8. OXYCONTIN [Suspect]
     Route: 048
  9. MORPHINE HYDROCHLORIDE [Suspect]
     Indication: CANCER PAIN
     Route: 048
  10. MORPHINE HYDROCHLORIDE [Suspect]
     Route: 048
  11. MORPHINE HYDROCHLORIDE [Suspect]
     Route: 048
  12. MORPHINE HYDROCHLORIDE [Suspect]
     Route: 048
  13. MORPHINE HYDROCHLORIDE [Suspect]
     Route: 048
  14. MORPHINE HYDROCHLORIDE [Suspect]
     Route: 062
  15. LOXONIN [Concomitant]
     Indication: ANALGESIC THERAPY
     Route: 048
  16. RIVOTRIL [Concomitant]
     Indication: ANALGESIC THERAPY
     Route: 048
  17. LORAZEPAM [Concomitant]
     Indication: ANALGESIC THERAPY
     Route: 048
  18. MUCOSTA [Concomitant]
     Indication: PROPHYLAXIS
     Route: 048
  19. MAGMITT [Concomitant]
     Indication: CONSTIPATION
     Route: 048
  20. SENNOSIDE [Concomitant]
     Indication: CONSTIPATION
     Route: 048
  21. LECICARBON [Concomitant]
     Indication: CONSTIPATION
     Route: 054
  22. DESYREL [Concomitant]
     Indication: ANALGESIC THERAPY
     Route: 048
  23. YOKUKAN-SAN [Concomitant]
     Indication: ANALGESIC THERAPY
     Route: 048
  24. FLOMOX [Concomitant]
     Indication: HYDRONEPHROSIS
     Route: 048
  25. HERBAL PREPARATION [Concomitant]
     Indication: ANALGESIC THERAPY
     Route: 048
  26. HERBAL PREPARATION [Concomitant]
     Route: 048
  27. CIPROFLOXACIN HYDROCHLORIDE [Concomitant]
     Indication: HYDRONEPHROSIS
     Route: 048
  28. FERROMIA [Concomitant]
     Indication: ANAEMIA
     Route: 048
  29. TRANSAMIN [Concomitant]
     Indication: ANAEMIA
     Route: 048
  30. ZOLOFT [Concomitant]
     Indication: ANALGESIC THERAPY
     Route: 048
  31. ZYPREXA [Concomitant]
     Indication: ANALGESIC THERAPY
     Route: 048
  32. OMEPRAL [Concomitant]
     Indication: PROPHYLAXIS
     Route: 048

REACTIONS (4)
  - CONSTIPATION [None]
  - NAUSEA [None]
  - PAIN [None]
  - RECTAL PERFORATION [None]
